FAERS Safety Report 20230623 (Version 1)
Quarter: 2021Q4

REPORT INFORMATION
  Report Type: Spontaneous
  Country: GB (occurrence: GB)
  Receive Date: 20211227
  Receipt Date: 20211227
  Transmission Date: 20220303
  Serious: Yes (Life-Threatening, Other)
  Sender: FDA-Public Use
  Company Number: GB-MHRA-WEBCOVID-202112142014050800-WIOVW

PATIENT
  Age: 35 Year
  Sex: Female
  Weight: 78 kg

DRUGS (2)
  1. RAMIPRIL [Suspect]
     Active Substance: RAMIPRIL
     Indication: Product used for unknown indication
     Dosage: UNK
     Route: 065
  2. PFIZER-BIONTECH COVID-19 VACCINE [Suspect]
     Active Substance: TOZINAMERAN
     Indication: Product used for unknown indication
     Dosage: UNK (DOSE 1)
     Route: 065
     Dates: start: 20210803

REACTIONS (6)
  - Myocardial infarction [Not Recovered/Not Resolved]
  - Hypertension [Not Recovered/Not Resolved]
  - Fatigue [Unknown]
  - Chest pain [Unknown]
  - Palpitations [Unknown]
  - Tachycardia [Unknown]

NARRATIVE: CASE EVENT DATE: 20210824
